FAERS Safety Report 6582989-8 (Version None)
Quarter: 2010Q1

REPORT INFORMATION
  Report Type: 
  Country: None (occurrence: None)
  Receive Date: 20100216
  Receipt Date: 20100208
  Transmission Date: 20100710
  Serious: Yes (Hospitalization)
  Sender: FDA-Public Use
  Company Number: JP-ASTRAZENECA-2010SE03985

PATIENT
  Age: 79 Year
  Sex: Male
  Weight: 48 kg

DRUGS (12)
  1. BLOPRESS [Suspect]
     Indication: HYPERTENSION
     Route: 048
     Dates: start: 20050204, end: 20070523
  2. BLOPRESS [Suspect]
     Route: 048
     Dates: start: 20070601, end: 20070611
  3. PANALDINE [Suspect]
     Indication: BASILAR ARTERY STENOSIS
     Route: 048
     Dates: start: 20040820, end: 20070611
  4. MELBIN [Concomitant]
     Indication: DIABETES MELLITUS
     Route: 048
     Dates: start: 19990319, end: 20061031
  5. ATELEC [Concomitant]
     Indication: HYPERTENSION
     Route: 048
     Dates: start: 20060922, end: 20070523
  6. NICHI E-NATE [Concomitant]
     Indication: LIPID METABOLISM DISORDER
     Route: 048
     Dates: start: 20070209, end: 20070523
  7. EPICALS-S [Concomitant]
     Indication: BENIGN PROSTATIC HYPERPLASIA
     Route: 048
     Dates: start: 19990101, end: 20070425
  8. ORIVATE [Concomitant]
     Indication: BENIGN PROSTATIC HYPERPLASIA
     Route: 048
     Dates: start: 19990101, end: 20070425
  9. TAMSLON [Concomitant]
     Indication: BENIGN PROSTATIC HYPERPLASIA
     Route: 048
     Dates: start: 19990101, end: 20070425
  10. HARNAL D [Concomitant]
     Indication: BENIGN PROSTATIC HYPERPLASIA
     Route: 048
     Dates: start: 20070425, end: 20070524
  11. HARNAL D [Concomitant]
     Route: 048
     Dates: start: 20070602
  12. INSULIN HUMAN [Concomitant]
     Indication: DIABETES MELLITUS
     Route: 058
     Dates: start: 19921224

REACTIONS (1)
  - SYSTEMIC LUPUS ERYTHEMATOSUS [None]
